FAERS Safety Report 24538385 (Version 1)
Quarter: 2024Q4

REPORT INFORMATION
  Report Type: Spontaneous
  Country: US (occurrence: US)
  Receive Date: 20241023
  Receipt Date: 20241023
  Transmission Date: 20250114
  Serious: Yes (Other)
  Sender: CSL BEHRING
  Company Number: US-BEH-2024182438

PATIENT
  Age: 51 Year
  Sex: Male

DRUGS (3)
  1. HIZENTRA [Suspect]
     Active Substance: HUMAN IMMUNOGLOBULIN G
     Indication: Immunodeficiency common variable
     Dosage: 10GM/50ML: WITHDRAW 100ML INTO TWO SYRINGES, INFUSE 100M(20GM) SUBCUTANEOUSLY ONCE WEEK THROUGH 4 SI
     Route: 058
     Dates: start: 20220825
  2. LOSARTAN POTASSIUM [Concomitant]
     Active Substance: LOSARTAN POTASSIUM
     Dosage: 50 MG, TABLET
  3. ZYRTEC [Concomitant]
     Active Substance: CETIRIZINE HYDROCHLORIDE
     Dosage: 10 MG, TABLET

REACTIONS (1)
  - Drug ineffective [Unknown]
